FAERS Safety Report 9237565 (Version 3)
Quarter: 2013Q2

REPORT INFORMATION
  Report Type: Spontaneous
  Country: US (occurrence: US)
  Receive Date: 20130418
  Receipt Date: 20130509
  Transmission Date: 20140414
  Serious: Yes (Other)
  Sender: FDA-Public Use
  Company Number: US-AMGEN-USASP2013025080

PATIENT
  Age: 65 Year
  Sex: Female

DRUGS (8)
  1. PROLIA [Suspect]
     Indication: PRODUCT USED FOR UNKNOWN INDICATION
     Dosage: UNK
     Dates: start: 2010, end: 20120814
  2. CALCIUM [Concomitant]
  3. VITAMIN D /00107901/ [Concomitant]
  4. DILTIAZEM [Concomitant]
  5. COZAAR [Concomitant]
  6. CLONAZEPAM [Concomitant]
  7. CELEXA                             /00582602/ [Concomitant]
  8. BISPHOSPHONATES [Concomitant]

REACTIONS (7)
  - Eye haemorrhage [Unknown]
  - Hypertension [Unknown]
  - Headache [Unknown]
  - Pain in jaw [Unknown]
  - Dyskinesia [Unknown]
  - Bone density decreased [Unknown]
  - Gastrooesophageal reflux disease [Unknown]
